FAERS Safety Report 7788134-5 (Version None)
Quarter: 2011Q3

REPORT INFORMATION
  Report Type: 
  Country: None (occurrence: None)
  Receive Date: 20110927
  Receipt Date: 20110919
  Transmission Date: 20111222
  Serious: Yes (Other)
  Sender: FDA-Public Use
  Company Number: AUR-APL-2011-05129

PATIENT
  Age: 53 Year
  Sex: Male

DRUGS (2)
  1. PEGINTERFERON ALFA-2A [Suspect]
     Indication: HEPATITIS C
     Dosage: [180 MCG, 1 WK), SUBCUTANEOUS
     Route: 058
  2. RIBAVIRIN [Suspect]
     Indication: HEPATITIS C
     Dosage: 1000 MG (500 MG, 2 IN 1 D), ORAL
     Route: 048

REACTIONS (17)
  - ARTHRALGIA [None]
  - ANXIETY [None]
  - DRY MOUTH [None]
  - APATHY [None]
  - NEUTROPENIA [None]
  - DEPRESSION [None]
  - IRRITABILITY [None]
  - RETINAL HAEMORRHAGE [None]
  - ANAEMIA [None]
  - MYALGIA [None]
  - HEADACHE [None]
  - DRY SKIN [None]
  - PRURITUS [None]
  - NASAL CONGESTION [None]
  - RETINAL EXUDATES [None]
  - ASTHENIA [None]
  - THROMBOCYTOPENIA [None]
